FAERS Safety Report 10647664 (Version 2)
Quarter: 2015Q1

REPORT INFORMATION
  Report Type: Spontaneous
  Country: CA (occurrence: CA)
  Receive Date: 20141211
  Receipt Date: 20150203
  Transmission Date: 20150720
  Serious: Yes (Hospitalization, Other)
  Sender: FDA-Public Use
  Company Number: CA-ROCHE-1505970

PATIENT
  Age: 74 Year
  Sex: Female

DRUGS (4)
  1. XOLAIR [Suspect]
     Active Substance: OMALIZUMAB
     Indication: ASTHMA
     Route: 058
     Dates: start: 20130517
  2. ADVAIR HFA [Concomitant]
     Active Substance: FLUTICASONE PROPIONATE\SALMETEROL XINAFOATE
  3. VENTOLIN [Concomitant]
     Active Substance: ALBUTEROL SULFATE
  4. AVAR [Concomitant]
     Active Substance: SULFACETAMIDE SODIUM\SULFUR

REACTIONS (2)
  - Hip fracture [Recovering/Resolving]
  - Fall [Unknown]

NARRATIVE: CASE EVENT DATE: 20141127
